FAERS Safety Report 7390046-6 (Version None)
Quarter: 2011Q2

REPORT INFORMATION
  Report Type: 
  Country: None (occurrence: None)
  Receive Date: 20110401
  Receipt Date: 20110312
  Transmission Date: 20111010
  Serious: No
  Sender: FDA-Public Use
  Company Number: US-B.I. PHARMACEUTICALS,INC./RIDGEFIELD-2011-BP-08401BP

PATIENT
  Age: 84 Year
  Sex: Female

DRUGS (1)
  1. ZANTAC [Suspect]
     Indication: DYSPEPSIA
     Dosage: ONE TABLET ONCE OR TWICE DAILY
     Route: 048
     Dates: start: 20110101

REACTIONS (4)
  - OROPHARYNGEAL PLAQUE [None]
  - DRUG INEFFECTIVE [None]
  - THROAT LESION [None]
  - DYSGEUSIA [None]
